FAERS Safety Report 14635135 (Version 2)
Quarter: 2018Q1

REPORT INFORMATION
  Report Type: Spontaneous
  Country: US (occurrence: US)
  Receive Date: 20180314
  Receipt Date: 20180328
  Transmission Date: 20180509
  Serious: No
  Sender: FDA-Public Use
  Company Number: US-GLAXOSMITHKLINE-US2018040640

PATIENT
  Age: 81 Year
  Sex: Female

DRUGS (5)
  1. FLONASE [Concomitant]
     Active Substance: FLUTICASONE PROPIONATE
  2. ANORO ELLIPTA [Suspect]
     Active Substance: UMECLIDINIUM BROMIDE\VILANTEROL TRIFENATATE
     Indication: BRONCHITIS
     Dosage: 1 PUFF(S), QD
     Route: 055
     Dates: start: 20180307, end: 20180308
  3. BENZONATATE CAPSULE [Concomitant]
  4. MUCINEX [Concomitant]
     Active Substance: GUAIFENESIN
  5. SINEX (OXYMETAZOLINE HYDROCHLORIDE) [Concomitant]

REACTIONS (4)
  - Parosmia [Unknown]
  - Wrong technique in device usage process [Unknown]
  - Dysgeusia [Unknown]
  - Expired product administered [Recovered/Resolved]

NARRATIVE: CASE EVENT DATE: 20180307
